FAERS Safety Report 7762313-5 (Version None)
Quarter: 2011Q3

REPORT INFORMATION
  Report Type: 
  Country: None (occurrence: None)
  Receive Date: 20110920
  Receipt Date: 20110912
  Transmission Date: 20111222
  Serious: Yes (Death, Hospitalization)
  Sender: FDA-Public Use
  Company Number: FI-ROCHE-802456

PATIENT
  Sex: Female

DRUGS (6)
  1. GRANISETRON [Concomitant]
     Route: 048
  2. PREDNISONE [Concomitant]
     Route: 048
     Dates: start: 20110201
  3. XELODA [Suspect]
     Route: 048
     Dates: start: 20110121, end: 20110201
  4. IMOCUR [Concomitant]
     Route: 048
  5. PANTOPRAZOLE [Concomitant]
     Route: 048
     Dates: start: 20110201
  6. PRIMPERAN TAB [Concomitant]
     Route: 048

REACTIONS (6)
  - ORAL PAIN [None]
  - ACUTE MYOCARDIAL INFARCTION [None]
  - COLITIS [None]
  - DEPRESSED LEVEL OF CONSCIOUSNESS [None]
  - DYSPNOEA [None]
  - MONOPLEGIA [None]
